FAERS Safety Report 4607657-0 (Version None)
Quarter: 2005Q2

REPORT INFORMATION
  Report Type: 
  Country: None (occurrence: None)
  Receive Date: 20050228
  Receipt Date: 20041101
  Transmission Date: 20051028
  Serious: No
  Sender: FDA-Public Use
  Company Number: FABR-10811

PATIENT
  Age: 8 Year
  Sex: Male
  Weight: 25 kg

DRUGS (4)
  1. FABRAZYME [Suspect]
     Indication: FABRY'S DISEASE
     Dosage: 25 MG Q2WKS IV
     Route: 042
     Dates: start: 20040903
  2. DECADRON [Concomitant]
  3. DIPHENHYDRAMINE HCL [Concomitant]
  4. ACETAMINOPHEN [Concomitant]

REACTIONS (6)
  - FACE OEDEMA [None]
  - HEADACHE [None]
  - HYPERTENSION [None]
  - NAUSEA [None]
  - PYREXIA [None]
  - VOMITING [None]
